FAERS Safety Report 8173279-0 (Version None)
Quarter: 2012Q1

REPORT INFORMATION
  Report Type: 
  Country: None (occurrence: None)
  Receive Date: 20120229
  Receipt Date: 20120224
  Transmission Date: 20120608
  Serious: Yes (Hospitalization)
  Sender: FDA-Public Use
  Company Number: JP-JNJFOC-20120105677

PATIENT
  Sex: Male

DRUGS (15)
  1. LEVOFLOXACIN [Suspect]
     Route: 048
     Dates: start: 20110625, end: 20111108
  2. LEVOFLOXACIN [Suspect]
     Route: 048
     Dates: start: 20111223, end: 20111225
  3. LEVOFLOXACIN [Suspect]
     Route: 048
     Dates: end: 20120111
  4. LEVOFLOXACIN [Suspect]
     Route: 048
     Dates: start: 20111228, end: 20120110
  5. MOTILIUM [Concomitant]
     Indication: GASTRITIS
     Route: 048
     Dates: start: 20110314
  6. AMOBAN [Concomitant]
     Indication: INSOMNIA
     Route: 048
  7. BIO-THREE [Concomitant]
     Indication: GASTRITIS
     Route: 048
     Dates: start: 20110627
  8. VERAPAMIL HCL [Concomitant]
     Indication: ATRIAL FIBRILLATION
     Route: 048
     Dates: start: 20110302
  9. EPADEL [Concomitant]
     Indication: PERIPHERAL ARTERIAL OCCLUSIVE DISEASE
     Route: 048
     Dates: start: 20100120
  10. LEVOFLOXACIN [Suspect]
     Indication: INTERVERTEBRAL DISCITIS
     Route: 048
     Dates: start: 20110623
  11. LEVOFLOXACIN [Suspect]
     Route: 048
     Dates: start: 20111109, end: 20111222
  12. ASPIRIN [Concomitant]
     Indication: PERIPHERAL ARTERIAL OCCLUSIVE DISEASE
     Route: 048
  13. ALFAROL [Concomitant]
     Indication: DIALYSIS
     Route: 048
     Dates: start: 20110606
  14. ALFAROL [Concomitant]
     Indication: RENAL FAILURE CHRONIC
     Route: 048
     Dates: start: 20110606
  15. RABEPRAZOLE SODIUM [Concomitant]
     Indication: GASTRITIS
     Route: 048
     Dates: start: 20110622

REACTIONS (5)
  - PLATELET COUNT DECREASED [None]
  - NAUSEA [None]
  - VOMITING [None]
  - HEPATIC FUNCTION ABNORMAL [None]
  - ACCIDENTAL OVERDOSE [None]
